FAERS Safety Report 16648986 (Version 1)
Quarter: 2019Q3

REPORT INFORMATION
  Report Type: Report from Study
  Country: BR (occurrence: BR)
  Receive Date: 20190730
  Receipt Date: 20190730
  Transmission Date: 20191004
  Serious: Yes (Other)
  Sender: FDA-Public Use
  Company Number: BR-009507513-1907BRA015184

PATIENT
  Age: 69 Year
  Sex: Male
  Weight: 103 kg

DRUGS (21)
  1. NAPRIX [Suspect]
     Active Substance: RAMIPRIL
     Indication: CARDIAC DISORDER
     Dosage: UNK
  2. CENTRUM (MINERALS (UNSPECIFIED) (+) VITAMINS (UNSPECIFIED)) [Suspect]
     Active Substance: MINERALS\VITAMINS
     Indication: VITAMIN SUPPLEMENTATION
     Dosage: 1 DF, UNK
     Route: 048
  3. SOMATULINA [Suspect]
     Active Substance: LANREOTIDE ACETATE
     Indication: PRODUCT USED FOR UNKNOWN INDICATION
     Route: 065
  4. METFORMIN [Suspect]
     Active Substance: METFORMIN HYDROCHLORIDE
     Indication: PRODUCT USED FOR UNKNOWN INDICATION
     Route: 048
  5. NAPRIX [Suspect]
     Active Substance: RAMIPRIL
     Indication: COAGULOPATHY
     Dosage: 1 DF, DAILY
     Route: 048
     Dates: start: 2009
  6. IBANDRONATE SODIUM. [Suspect]
     Active Substance: IBANDRONATE SODIUM
     Indication: RHEUMATIC DISORDER
     Dosage: 2 DF, DAILY
     Route: 048
  7. DAONIL [Concomitant]
     Active Substance: GLYBURIDE
     Indication: DIABETES MELLITUS
     Dosage: 1 DF, DAILY
     Route: 048
     Dates: start: 2013
  8. COLLAGEN [Concomitant]
     Active Substance: COLLAGEN
     Indication: PRODUCT USED FOR UNKNOWN INDICATION
     Route: 048
  9. CLOPIDOGREL [Suspect]
     Active Substance: CLOPIDOGREL BISULFATE
     Indication: CARDIOVASCULAR INSUFFICIENCY
     Dosage: 1 DF, QD
     Route: 048
     Dates: start: 2009
  10. SOMALGIN [Suspect]
     Active Substance: ASPIRIN\DIHYDROXYALUMINUM AMINOACETATE ANHYDROUS\MAGNESIUM CARBONATE
     Indication: ANTICOAGULANT THERAPY
     Dosage: 1 DF, DAILY
     Route: 048
     Dates: start: 2009
  11. AAS [Concomitant]
     Active Substance: ASPIRIN
     Indication: CARDIAC DISORDER
     Dosage: 1 DF, QD
     Route: 065
     Dates: start: 2009
  12. FINASTERIDE. [Suspect]
     Active Substance: FINASTERIDE
     Indication: PROSTATIC DISORDER
     Dosage: 1 DF, QD
     Route: 048
  13. GLIFAGE [Suspect]
     Active Substance: METFORMIN HYDROCHLORIDE
     Indication: DIABETES MELLITUS
  14. CYANOCOBALAMIN. [Concomitant]
     Active Substance: CYANOCOBALAMIN
     Indication: RHEUMATIC DISORDER
     Dosage: 1 DF, QD
     Route: 048
  15. SELENIUM (UNSPECIFIED) [Concomitant]
     Active Substance: SELENIUM
     Indication: RHEUMATIC DISORDER
     Dosage: 1 DF, QD
     Route: 048
  16. SANDOSTATIN [Suspect]
     Active Substance: OCTREOTIDE ACETATE
     Indication: BRAIN NEOPLASM MALIGNANT
     Dosage: 120 MG, EVERY 28 DAYS
     Route: 030
  17. ZINC (UNSPECIFIED) [Concomitant]
     Active Substance: ZINC
     Indication: RHEUMATIC DISORDER
     Dosage: 1 DF, QD
     Route: 048
  18. LIPITOR [Suspect]
     Active Substance: ATORVASTATIN CALCIUM
     Indication: BLOOD CHOLESTEROL ABNORMAL
     Dosage: 1 DF, QHS (AT NIGHT)
     Route: 048
     Dates: start: 2009
  19. SANDOSTATIN [Suspect]
     Active Substance: OCTREOTIDE ACETATE
     Dosage: 120 MG, EVERY 21 OR 25 DAYS
     Route: 030
     Dates: start: 2013
  20. AFINITOR [Suspect]
     Active Substance: EVEROLIMUS
     Indication: PRODUCT USED FOR UNKNOWN INDICATION
     Dosage: 10 MG, UNK
     Route: 048
  21. GLIFAGE [Suspect]
     Active Substance: METFORMIN HYDROCHLORIDE
     Indication: GLUCOSE TOLERANCE IMPAIRED
     Dosage: 1 DOSAGE FORM, QD
     Route: 048

REACTIONS (12)
  - Injection site pain [Recovered/Resolved]
  - Injection site hypersensitivity [Recovered/Resolved]
  - Product use in unapproved indication [Unknown]
  - Faeces discoloured [Not Recovered/Not Resolved]
  - Injection site swelling [Recovered/Resolved]
  - Pain in extremity [Unknown]
  - Injection site induration [Recovered/Resolved]
  - Gastrointestinal pain [Recovered/Resolved]
  - Body height decreased [Not Recovered/Not Resolved]
  - Blood glucose increased [Not Recovered/Not Resolved]
  - Diarrhoea [Recovering/Resolving]
  - Flatulence [Recovering/Resolving]

NARRATIVE: CASE EVENT DATE: 2013
